FAERS Safety Report 5697430-7 (Version None)
Quarter: 2008Q2

REPORT INFORMATION
  Report Type: 
  Country: None (occurrence: None)
  Receive Date: 20080407
  Receipt Date: 20080331
  Transmission Date: 20081010
  Serious: Yes (Hospitalization, Other)
  Sender: FDA-Public Use
  Company Number: PHHY2008BR02547

PATIENT
  Age: 24 Year
  Sex: Female
  Weight: 70.5 kg

DRUGS (4)
  1. UTROGESTAN [Concomitant]
     Indication: HAEMORRHAGE
     Dosage: 1 TABLET, AT NIGHT
     Route: 067
  2. DACTIL [Concomitant]
     Dosage: 1 TABLET,TID
     Route: 048
  3. METHERGINE [Suspect]
     Indication: MENORRHAGIA
     Dosage: 125 MG , EACH 8 HOURS
     Route: 048
     Dates: start: 20080222, end: 20080224
  4. METHERGINE [Suspect]
     Dosage: UNK, 2 DAYS
     Dates: start: 20070801

REACTIONS (8)
  - ABDOMINAL DISTENSION [None]
  - ABORTION SPONTANEOUS [None]
  - DRUG EXPOSURE DURING PREGNANCY [None]
  - HAEMORRHAGE [None]
  - MENSTRUAL DISORDER [None]
  - NAUSEA [None]
  - OVARIAN CYST [None]
  - PREMATURE SEPARATION OF PLACENTA [None]
